FAERS Safety Report 10579494 (Version 3)
Quarter: 2015Q2

REPORT INFORMATION
  Report Type: Spontaneous
  Country: US (occurrence: US)
  Receive Date: 20141112
  Receipt Date: 20150519
  Transmission Date: 20150821
  Serious: Yes (Hospitalization)
  Sender: FDA-Public Use
  Company Number: US-BAYER-2014-166569

PATIENT
  Age: 30 Year
  Sex: Female
  Weight: 78 kg

DRUGS (7)
  1. DIFLUCAN [Concomitant]
     Active Substance: FLUCONAZOLE
  2. ZOLOFT [Concomitant]
     Active Substance: SERTRALINE HYDROCHLORIDE
     Indication: DEPRESSION
  3. LYRICA [Concomitant]
     Active Substance: PREGABALIN
  4. VALTREX [Concomitant]
     Active Substance: VALACYCLOVIR HYDROCHLORIDE
     Dosage: UNK
     Dates: start: 20090309, end: 20120314
  5. MIRENA [Suspect]
     Active Substance: LEVONORGESTREL
     Indication: CONTRACEPTION
     Dosage: 20 MCG/24HR, CONT
     Route: 015
     Dates: start: 20070320, end: 20120410
  6. AMOXICILLIN. [Concomitant]
     Active Substance: AMOXICILLIN
     Indication: PHARYNGITIS
  7. VALIUM [Concomitant]
     Active Substance: DIAZEPAM
     Dosage: UNK
     Dates: start: 20120314

REACTIONS (11)
  - Menorrhagia [None]
  - Fear [None]
  - Abdominal pain [None]
  - Depression [None]
  - Injury [None]
  - Anxiety [None]
  - Uterine perforation [None]
  - Drug ineffective [None]
  - Stress [None]
  - Ectopic pregnancy with contraceptive device [Recovering/Resolving]
  - Mental disorder [None]

NARRATIVE: CASE EVENT DATE: 201201
